FAERS Safety Report 11753380 (Version 3)
Quarter: 2019Q2

REPORT INFORMATION
  Report Type: Report from Study
  Country: US (occurrence: US)
  Receive Date: 20151119
  Receipt Date: 20190607
  Transmission Date: 20190711
  Serious: Yes (Other)
  Sender: FDA-Public Use
  Company Number: US-ROCHE-1663436

PATIENT

DRUGS (1)
  1. VEMURAFENIB. [Suspect]
     Active Substance: VEMURAFENIB
     Indication: METASTATIC MALIGNANT MELANOMA
     Route: 065

REACTIONS (10)
  - Acute kidney injury [Recovered/Resolved]
  - Sialoadenitis [Recovered/Resolved]
  - Uveitis [Recovered/Resolved]
  - Hyperkalaemia [Recovered/Resolved]
  - Hypokalaemia [Recovered/Resolved]
  - Lymphocyte count decreased [Recovered/Resolved]
  - Febrile neutropenia [Recovered/Resolved]
  - Vascular access complication [Recovered/Resolved]
  - Electrocardiogram QT prolonged [Recovered/Resolved]
  - Photosensitivity reaction [Recovered/Resolved]

NARRATIVE: CASE EVENT DATE: 20140518
